FAERS Safety Report 21135660 (Version 2)
Quarter: 2022Q3

REPORT INFORMATION
  Report Type: Report from Study
  Country: DE (occurrence: None)
  Receive Date: 20220727
  Receipt Date: 20220915
  Transmission Date: 20221027
  Serious: Yes (Hospitalization)
  Sender: FDA-Public Use
  Company Number: DE-ROCHE-3145436

PATIENT
  Age: 26 Year
  Sex: Female
  Weight: 68 kg

DRUGS (10)
  1. ATEZOLIZUMAB [Suspect]
     Active Substance: ATEZOLIZUMAB
     Indication: Triple negative breast cancer
     Dosage: DATE OF LAST DOSE PRIOR TO SAE: 11/MAY/2022
     Route: 041
     Dates: start: 20220329
  2. PACLITAXEL [Suspect]
     Active Substance: PACLITAXEL
     Indication: Triple negative breast cancer
     Dosage: DATE OF LAST DOSE PRIOR TO SAE:17/JUN/2022
     Route: 042
     Dates: start: 20220329
  3. CARBOPLATIN [Suspect]
     Active Substance: CARBOPLATIN
     Indication: Triple negative breast cancer
     Dosage: DATE OF LAST DOSE PRIOR TO SAE:17/JUN/2022
     Route: 042
     Dates: start: 20220329
  4. DEXPANTHENOL [Concomitant]
     Active Substance: DEXPANTHENOL
     Dates: start: 20220502
  5. TORSEMIDE [Concomitant]
     Active Substance: TORSEMIDE
     Dates: start: 20220608
  6. PANTOPRAZOLE [Concomitant]
     Active Substance: PANTOPRAZOLE
  7. APIXABAN [Concomitant]
     Active Substance: APIXABAN
     Dates: start: 20220628, end: 20220704
  8. APIXABAN [Concomitant]
     Active Substance: APIXABAN
     Dates: start: 20220705
  9. CYANOCOBALAMIN [Concomitant]
     Active Substance: CYANOCOBALAMIN
  10. POTASSIUM CHLORIDE [Concomitant]
     Active Substance: POTASSIUM CHLORIDE

REACTIONS (1)
  - Immune-mediated myocarditis [Recovering/Resolving]

NARRATIVE: CASE EVENT DATE: 20220623
